FAERS Safety Report 19554030 (Version 2)
Quarter: 2021Q3

REPORT INFORMATION
  Report Type: Report from Study
  Country: DE (occurrence: DE)
  Receive Date: 20210714
  Receipt Date: 20210727
  Transmission Date: 20211014
  Serious: Yes (Other)
  Sender: FDA-Public Use
  Company Number: DE-SA-2021SA230034

PATIENT
  Sex: Male

DRUGS (4)
  1. PLACEBO [Suspect]
     Active Substance: UNSPECIFIED INGREDIENT
  2. BLINDED DUPILUMAB [Suspect]
     Active Substance: DUPILUMAB
  3. BLINDED NO STUDY DRUG GIVEN [Suspect]
     Active Substance: INVESTIGATIONAL PRODUCT
  4. BLINDED DUPILUMAB [Suspect]
     Active Substance: DUPILUMAB

REACTIONS (1)
  - Renal impairment [Unknown]
